FAERS Safety Report 4278033-8 (Version None)
Quarter: 2004Q1

REPORT INFORMATION
  Report Type: 
  Country: None (occurrence: None)
  Receive Date: 20040121
  Receipt Date: 20040108
  Transmission Date: 20041129
  Serious: Yes (Hospitalization, Other)
  Sender: FDA-Public Use
  Company Number: 2004001963

PATIENT
  Age: 75 Year
  Sex: Male
  Weight: 95.2554 kg

DRUGS (11)
  1. LIPITOR [Suspect]
     Indication: BLOOD CHOLESTEROL
     Dosage: DAILY, ORAL
     Route: 048
  2. LOPID [Suspect]
     Indication: BLOOD CHOLESTEROL
     Dosage: ORAL
     Route: 048
  3. IPRATROPIUM BROMIDE [Concomitant]
  4. SALBUTAMOL (SALBUTAMOL) [Concomitant]
  5. LISINOPRIL [Concomitant]
  6. PREDNISONE [Concomitant]
  7. METFORMIN HCL [Concomitant]
  8. QUININE (QUININE) [Concomitant]
  9. ACETYLSALICYLIC ACID SRT [Concomitant]
  10. COMBIVENT [Concomitant]
  11. SALBUTAMOL (SALBUTAMOL) [Concomitant]

REACTIONS (6)
  - LABORATORY TEST ABNORMAL [None]
  - LUNG DISORDER [None]
  - MUSCLE CRAMP [None]
  - MYOCARDIAL INFARCTION [None]
  - SCAR [None]
  - WEIGHT INCREASED [None]
